FAERS Safety Report 24131128 (Version 1)
Quarter: 2024Q3

REPORT INFORMATION
  Report Type: Report from Study
  Country: CN (occurrence: CN)
  Receive Date: 20240724
  Receipt Date: 20240724
  Transmission Date: 20241016
  Serious: Yes (Death, Other)
  Sender: ROCHE
  Company Number: CN-ROCHE-3577093

PATIENT

DRUGS (10)
  1. BEVACIZUMAB [Suspect]
     Active Substance: BEVACIZUMAB
     Indication: Hepatocellular carcinoma
     Route: 065
  2. TISLELIZUMAB [Suspect]
     Active Substance: TISLELIZUMAB
     Indication: Hepatocellular carcinoma
     Route: 065
  3. SINTILIMAB [Suspect]
     Active Substance: SINTILIMAB
     Indication: Hepatocellular carcinoma
     Route: 065
  4. TORIPALIMAB [Suspect]
     Active Substance: TORIPALIMAB
     Indication: Hepatocellular carcinoma
     Route: 065
  5. RIVOCERANIB [Suspect]
     Active Substance: RIVOCERANIB
     Indication: Hepatocellular carcinoma
     Route: 065
  6. LENVATINIB [Suspect]
     Active Substance: LENVATINIB
     Indication: Hepatocellular carcinoma
     Route: 065
  7. SORAFENIB [Suspect]
     Active Substance: SORAFENIB
     Indication: Hepatocellular carcinoma
     Route: 065
  8. REGORAFENIB [Suspect]
     Active Substance: REGORAFENIB
     Indication: Hepatocellular carcinoma
     Route: 065
  9. DONAFENIB [Suspect]
     Active Substance: DONAFENIB
     Indication: Hepatocellular carcinoma
     Route: 065
  10. AFATINIB [Suspect]
     Active Substance: AFATINIB
     Indication: Hepatocellular carcinoma
     Route: 065

REACTIONS (6)
  - Hepatitis B reactivation [Unknown]
  - Hepatitis [Unknown]
  - Hepatitis B [Unknown]
  - Hypovolaemic shock [Fatal]
  - Tumour rupture [Fatal]
  - Immune system disorder [Unknown]
